FAERS Safety Report 10083921 (Version 1)
Quarter: 2014Q2

REPORT INFORMATION
  Report Type: Report from Study
  Country: US (occurrence: US)
  Receive Date: 20140417
  Receipt Date: 20140417
  Transmission Date: 20141212
  Serious: Yes (Hospitalization)
  Sender: FDA-Public Use
  Company Number: US-UCBSA-118364

PATIENT
  Age: 57 Year
  Sex: Female
  Weight: 126 kg

DRUGS (12)
  1. CIMZIA [Suspect]
     Indication: CROHN^S DISEASE
     Route: 058
     Dates: start: 20091109
  2. COLOZAL [Concomitant]
     Route: 048
     Dates: start: 20090311
  3. PROTONIX [Concomitant]
     Route: 048
  4. CYMBALTA [Concomitant]
     Route: 048
  5. SYNTHROID [Concomitant]
     Route: 048
  6. LANTUS [Concomitant]
     Dosage: 30 U
  7. LOVASTATIN [Concomitant]
     Route: 048
  8. 6-MP [Concomitant]
     Indication: CROHN^S DISEASE
     Dates: start: 20090311, end: 20130610
  9. 6-MP [Concomitant]
     Indication: CROHN^S DISEASE
     Dates: start: 20130221, end: 20130610
  10. INFLIXIMAB [Concomitant]
     Indication: CROHN^S DISEASE
     Dates: start: 20121114, end: 20130814
  11. IBUPROFEN [Concomitant]
  12. TUMS [Concomitant]

REACTIONS (1)
  - Pyelonephritis [Recovered/Resolved]
